FAERS Safety Report 6711979-7 (Version None)
Quarter: 2010Q2

REPORT INFORMATION
  Report Type: 
  Country: None (occurrence: None)
  Receive Date: 20100505
  Receipt Date: 20100423
  Transmission Date: 20101027
  Serious: Yes (Hospitalization, Other)
  Sender: FDA-Public Use
  Company Number: US-PFIZER INC-2010052627

PATIENT
  Sex: Male
  Weight: 85 kg

DRUGS (6)
  1. ZYVOX [Suspect]
     Indication: STAPHYLOCOCCAL INFECTION
     Dosage: 600 MG, 2X/DAY
     Route: 042
     Dates: start: 20100401
  2. ASPIRIN [Concomitant]
     Dosage: 81 MG, DAILY
  3. ENALAPRIL [Concomitant]
     Dosage: 20 MG, DAILY
  4. CLARITIN [Concomitant]
     Dosage: 10 MG, DAILY
  5. RIFAMPIN [Concomitant]
     Dosage: 300 MG, DAILY
  6. MULTI-VITAMINS [Concomitant]
     Dosage: UNK, DAILY

REACTIONS (6)
  - ASTHENIA [None]
  - BLOOD CREATININE INCREASED [None]
  - BLOOD UREA INCREASED [None]
  - HYPERGLYCAEMIA [None]
  - HYPERNATRAEMIA [None]
  - HYPOGLYCAEMIA [None]
